FAERS Safety Report 10655046 (Version 1)
Quarter: 2014Q4

REPORT INFORMATION
  Report Type: Spontaneous
  Country: US (occurrence: None)
  Receive Date: 20141215
  Receipt Date: 20141215
  Transmission Date: 20150529
  Serious: Yes (Disabling)
  Sender: FDA-Public Use
  Company Number: None

PATIENT
  Age: 23 Year
  Sex: Male
  Weight: 75.3 kg

DRUGS (1)
  1. FINASTERIDE. [Suspect]
     Active Substance: FINASTERIDE
     Indication: ALOPECIA
     Dosage: 1/4 A PILL
     Route: 048

REACTIONS (5)
  - Penis disorder [None]
  - Muscle atrophy [None]
  - Insomnia [None]
  - Dark circles under eyes [None]
  - Eye swelling [None]

NARRATIVE: CASE EVENT DATE: 20140924
